FAERS Safety Report 18165737 (Version 1)
Quarter: 2020Q3

REPORT INFORMATION
  Report Type: Spontaneous
  Country: SE (occurrence: SE)
  Receive Date: 20200818
  Receipt Date: 20200818
  Transmission Date: 20201103
  Serious: Yes (Death, Hospitalization, Disabling)
  Sender: FDA-Public Use
  Company Number: SE-PURDUE-USA-2020-0162526

PATIENT
  Age: 81 Year
  Sex: Male

DRUGS (5)
  1. TARGINIQ ER [Suspect]
     Active Substance: NALOXONE HYDROCHLORIDE\OXYCODONE HYDROCHLORIDE
     Indication: SPINAL COMPRESSION FRACTURE
     Dosage: UNK (STYRKA: ^5/2,5^)
     Route: 065
     Dates: start: 20200609, end: 20200621
  2. EPLERENONE. [Concomitant]
     Active Substance: EPLERENONE
     Dosage: UNK
  3. OXYCONTIN [Suspect]
     Active Substance: OXYCODONE HYDROCHLORIDE
     Indication: SPINAL COMPRESSION FRACTURE
     Dosage: UNK
     Route: 065
     Dates: start: 20200621, end: 20200701
  4. BISOPROLOL [Concomitant]
     Active Substance: BISOPROLOL
     Dosage: UNK
  5. OXYNORM [Suspect]
     Active Substance: OXYCODONE HYDROCHLORIDE
     Indication: SPINAL COMPRESSION FRACTURE
     Dosage: UNK
     Route: 065
     Dates: start: 20200621, end: 20200701

REACTIONS (9)
  - Cognitive disorder [Fatal]
  - General physical health deterioration [Fatal]
  - Confusional state [Fatal]
  - Nightmare [Fatal]
  - Asthenia [Fatal]
  - Somnolence [Fatal]
  - Diarrhoea [Fatal]
  - Decreased appetite [Fatal]
  - Hallucination [Fatal]

NARRATIVE: CASE EVENT DATE: 20200612
